FAERS Safety Report 6144798-3 (Version None)
Quarter: 2009Q2

REPORT INFORMATION
  Report Type: 
  Country: None (occurrence: None)
  Receive Date: 20090401
  Receipt Date: 20090401
  Transmission Date: 20091009
  Serious: No
  Sender: FDA-Public Use
  Company Number: None

PATIENT
  Sex: Female
  Weight: 75.75 kg

DRUGS (16)
  1. CYCLOPHOSPHAMIDE [Suspect]
     Dosage: 1395 MG
  2. DOXIL [Suspect]
     Dosage: 7.4 MG
  3. PREDNISONE [Suspect]
     Dosage: 500 MG
  4. RITUXIMAB (MOAB C2B8 ANTI CD20, CHIMERIC) [Suspect]
     Dosage: 698 MG
  5. VINCRISTINE SULFATE [Suspect]
     Dosage: 2 MG
  6. ACYCLOVIR [Concomitant]
  7. AMLODIPINE [Concomitant]
  8. AZYTROMYCIN [Concomitant]
  9. DIAMINO-DIPHENYL SULFONE [Concomitant]
  10. DOCUSATE [Concomitant]
  11. EMTRICITABINE [Concomitant]
  12. ENALAPRIL MALEATE [Concomitant]
  13. FLUCONAZOLE [Concomitant]
  14. LEVETIRACETAM [Concomitant]
  15. LOPINAVIR [Concomitant]
  16. TENOFOVIR [Concomitant]

REACTIONS (1)
  - NEUTROPENIA [None]
